FAERS Safety Report 20469417 (Version 2)
Quarter: 2022Q2

REPORT INFORMATION
  Report Type: Other
  Country: US (occurrence: None)
  Receive Date: 20220214
  Receipt Date: 20220407
  Transmission Date: 20220720
  Serious: Yes (Other)
  Sender: FDA-Public Use
  Company Number: US-ROCHE-3000169

PATIENT
  Age: 54 Year
  Sex: Female
  Weight: 61.290 kg

DRUGS (4)
  1. OCREVUS [Suspect]
     Active Substance: OCRELIZUMAB
     Indication: Relapsing multiple sclerosis
     Dosage: DATE OF TREATMENT: 27/MAR/2018, 19/DEC/2019, 02/SEP/2020, 10/JUN/2021
     Route: 042
     Dates: start: 20180313
  2. BACLOFEN [Concomitant]
     Active Substance: BACLOFEN
  3. FOLIC ACID [Concomitant]
     Active Substance: FOLIC ACID
  4. OXYBUTYNIN [Concomitant]
     Active Substance: OXYBUTYNIN

REACTIONS (1)
  - Invasive ductal breast carcinoma [Unknown]

NARRATIVE: CASE EVENT DATE: 20210921
